FAERS Safety Report 9510401 (Version 2)
Quarter: 2013Q3

REPORT INFORMATION
  Report Type: Spontaneous
  Country: US (occurrence: US)
  Receive Date: 20130909
  Receipt Date: 20130909
  Transmission Date: 20140515
  Serious: No
  Sender: FDA-Public Use
  Company Number: US-BRISTOL-MYERS SQUIBB COMPANY-17424169

PATIENT
  Age: 83 Year
  Sex: Male

DRUGS (2)
  1. ABILIFY [Suspect]
     Indication: CHRONIC FATIGUE SYNDROME
  2. ABILIFY [Suspect]
     Indication: DEPRESSION

REACTIONS (2)
  - Drug ineffective [Unknown]
  - Tardive dyskinesia [Unknown]
